FAERS Safety Report 17507606 (Version 1)
Quarter: 2020Q1

REPORT INFORMATION
  Report Type: Spontaneous
  Country: US (occurrence: US)
  Receive Date: 20200306
  Receipt Date: 20200306
  Transmission Date: 20200409
  Serious: Yes (Hospitalization, Other)
  Sender: FDA-Public Use
  Company Number: US-SA-2019SA338832

PATIENT
  Age: 54 Year
  Sex: Female
  Weight: 84.4 kg

DRUGS (38)
  1. FABRAZYME [Suspect]
     Active Substance: AGALSIDASE BETA
     Route: 065
  2. SENSIPAR [Concomitant]
     Active Substance: CINACALCET HYDROCHLORIDE
     Indication: END STAGE RENAL DISEASE
     Dosage: 30 MG, QD
     Route: 048
  3. ATORVASTATIN [Concomitant]
     Active Substance: ATORVASTATIN
     Dosage: 1 DF, QD
     Route: 048
  4. BUDESONIDE. [Concomitant]
     Active Substance: BUDESONIDE
     Dosage: 0.25 MG
     Route: 065
  5. CLOPIDOGREL [Concomitant]
     Active Substance: CLOPIDOGREL BISULFATE
     Dosage: 1 DF, QD
     Route: 048
  6. GENTAMICIN. [Concomitant]
     Active Substance: GENTAMICIN
     Route: 065
  7. PRAMIPEXOLE. [Concomitant]
     Active Substance: PRAMIPEXOLE
     Dosage: 0.125 MG, QD AT BED TIME
     Route: 048
  8. RANITIDINE. [Concomitant]
     Active Substance: RANITIDINE
     Dosage: 150 MG
     Route: 048
  9. SENSIPAR [Concomitant]
     Active Substance: CINACALCET HYDROCHLORIDE
     Indication: SINGLE FUNCTIONAL KIDNEY
  10. CALCITRIOL. [Concomitant]
     Active Substance: CALCITRIOL
     Dosage: 0.5 UG, QD
     Route: 048
  11. DICYCLOMINE [Concomitant]
     Active Substance: DICYCLOMINE HYDROCHLORIDE
     Dosage: 10 MG, QD
     Route: 048
  12. FUROSEMIDE. [Concomitant]
     Active Substance: FUROSEMIDE
     Dosage: 1 DF, QD
     Route: 048
  13. HEPARIN [Concomitant]
     Active Substance: HEPARIN SODIUM
     Dosage: DISPENSE 30 ML VIALS; USE AS DIRECTED ON DIALYSIS
     Route: 065
  14. HYDROMORPHONE [Concomitant]
     Active Substance: HYDROMORPHONE
     Indication: PAIN
     Dosage: 1 DF, Q4H AS NEEDED FOR PAIN
     Route: 048
  15. SENNOSIDES. [Concomitant]
     Active Substance: SENNOSIDES
     Dosage: 1 DF, QD (PATIENT TAKING DIFFRENTLY 1 TABLET AS NEED)
     Route: 048
  16. PLAVIX [Concomitant]
     Active Substance: CLOPIDOGREL BISULFATE
     Route: 065
  17. CALCIUM ACETATE. [Concomitant]
     Active Substance: CALCIUM ACETATE
     Dosage: 1334 MG, TID
     Route: 048
  18. ESCITALOPRAM [ESCITALOPRAM OXALATE] [Concomitant]
     Active Substance: ESCITALOPRAM OXALATE
     Dosage: 5 MG
     Route: 048
  19. AIRDUO RESPICLICK [Concomitant]
     Active Substance: FLUTICASONE PROPIONATE\SALMETEROL XINAFOATE
     Dosage: 1 PUFF, BID
     Route: 055
  20. POTASSIUM CHLORIDE. [Concomitant]
     Active Substance: POTASSIUM CHLORIDE
     Dosage: 10 MEQ, QD
     Route: 048
  21. NIFEDIPINE. [Concomitant]
     Active Substance: NIFEDIPINE
     Indication: HYPERTENSION
  22. ASPIRIN [ACETYLSALICYLIC ACID] [Concomitant]
     Active Substance: ASPIRIN
     Dosage: 1 DF, QD
     Route: 048
  23. IPRATROPIUM [Concomitant]
     Active Substance: IPRATROPIUM
     Dosage: USE 2 SPRAYS INTO BOTH NOSTRILS, QD
  24. ONDANSETRON [Concomitant]
     Active Substance: ONDANSETRON
     Indication: NAUSEA
     Dosage: 1 DF, QD, EVERY 12-24 HOURS
     Route: 065
  25. NIFEDIPINE. [Concomitant]
     Active Substance: NIFEDIPINE
     Indication: AORTIC STENOSIS
     Dosage: 10 MG, QD
     Route: 065
  26. METOPROLOL. [Concomitant]
     Active Substance: METOPROLOL
     Indication: AORTIC STENOSIS
     Dosage: UNK
  27. LIDOCAINE AND PRILOCAINE [Concomitant]
     Active Substance: LIDOCAINE\PRILOCAINE
     Dosage: APPLY THIN LAYER OVER FISTULA PRIOR TO DIALYSIS
     Route: 065
  28. RENVELA [Concomitant]
     Active Substance: SEVELAMER CARBONATE
     Dosage: 1600 MG WITH MEALS AT BED TIME
     Route: 048
  29. KEFLEX [Concomitant]
     Active Substance: CEPHALEXIN
     Route: 065
  30. LINZESS [Concomitant]
     Active Substance: LINACLOTIDE
     Dosage: 290 UG, VERY MORNING BEFORE BEAKFAST
     Route: 048
  31. METOPROLOL TARTRATE. [Concomitant]
     Active Substance: METOPROLOL TARTRATE
     Dosage: 2 DF, BID
     Route: 048
  32. PANTOPRAZOLE [Concomitant]
     Active Substance: PANTOPRAZOLE
     Dosage: 40 MG, QD
     Route: 048
  33. TRAZODONE [Concomitant]
     Active Substance: TRAZODONE HYDROCHLORIDE
     Dosage: 50 MG, QD AT BED TIME
     Route: 048
  34. METOPROLOL. [Concomitant]
     Active Substance: METOPROLOL
     Indication: HYPERTENSION
  35. SENSIPAR [Concomitant]
     Active Substance: CINACALCET HYDROCHLORIDE
     Indication: HYPERPARATHYROIDISM
  36. AMITRIPTYLINE [Concomitant]
     Active Substance: AMITRIPTYLINE
     Dosage: 10 MG, QD AT BED TIME
     Route: 065
  37. ONDANSETRON [Concomitant]
     Active Substance: ONDANSETRON
     Indication: DRUG HYPERSENSITIVITY
  38. PRENATAL VITAMINS [MINERALS NOS;VITAMINS NOS] [Concomitant]
     Active Substance: MINERALS\VITAMINS
     Dosage: 1 DF, QD
     Route: 048

REACTIONS (21)
  - Rhinorrhoea [Unknown]
  - Haemoglobin decreased [Unknown]
  - Electrocardiogram abnormal [Unknown]
  - Blood potassium decreased [Unknown]
  - Blood urea increased [Unknown]
  - Blood glucose increased [Unknown]
  - Mean cell volume increased [Unknown]
  - Wheezing [Unknown]
  - Dyspnoea [Unknown]
  - Aortic valve disease [Recovering/Resolving]
  - Cellulitis [Unknown]
  - Pain in extremity [Unknown]
  - Anion gap decreased [Unknown]
  - Septic shock [Unknown]
  - Cough [Unknown]
  - Peripheral swelling [Recovering/Resolving]
  - Hypotension [Unknown]
  - Blood creatinine increased [Unknown]
  - White blood cell count increased [Unknown]
  - Malaise [Unknown]
  - Carbon dioxide decreased [Unknown]

NARRATIVE: CASE EVENT DATE: 20190916
